APPROVED DRUG PRODUCT: ALPRAZOLAM
Active Ingredient: ALPRAZOLAM
Strength: 0.5MG
Dosage Form/Route: TABLET;ORAL
Application: A074085 | Product #002
Applicant: ANI PHARMACEUTICALS INC
Approved: Feb 16, 1994 | RLD: No | RS: No | Type: DISCN